FAERS Safety Report 17450959 (Version 3)
Quarter: 2020Q1

REPORT INFORMATION
  Report Type: Report from Study
  Country: US (occurrence: US)
  Receive Date: 20200224
  Receipt Date: 20200305
  Transmission Date: 20200409
  Serious: No
  Sender: FDA-Public Use
  Company Number: NVSC2020US048703

PATIENT
  Age: 49 Year
  Sex: Female

DRUGS (1)
  1. GILENYA [Suspect]
     Active Substance: FINGOLIMOD HYDROCHLORIDE
     Indication: MULTIPLE SCLEROSIS
     Dosage: 0.5 MG, QD
     Route: 048
     Dates: start: 201806

REACTIONS (5)
  - Abdominal discomfort [Unknown]
  - Eye disorder [Unknown]
  - Balance disorder [Unknown]
  - Product dose omission [Unknown]
  - Bladder disorder [Unknown]

NARRATIVE: CASE EVENT DATE: 20200220
